APPROVED DRUG PRODUCT: PERPHENAZINE
Active Ingredient: PERPHENAZINE
Strength: 2MG
Dosage Form/Route: TABLET;ORAL
Application: A206691 | Product #001
Applicant: MYLAN PHARMACEUTICALS INC
Approved: Apr 14, 2017 | RLD: No | RS: No | Type: DISCN